FAERS Safety Report 20145126 (Version 1)
Quarter: 2021Q4

REPORT INFORMATION
  Report Type: Spontaneous
  Country: US (occurrence: US)
  Receive Date: 20211203
  Receipt Date: 20211203
  Transmission Date: 20220303
  Serious: Yes (Hospitalization, Other)
  Sender: FDA-Public Use
  Company Number: US-SA-SAC20211129000823

PATIENT
  Age: 47 Year
  Sex: Male

DRUGS (2)
  1. ZANTAC [Suspect]
     Active Substance: RANITIDINE HYDROCHLORIDE
     Indication: Dyspepsia
     Dosage: 150 MG, QD
     Dates: start: 200501, end: 201601
  2. ZANTAC [Suspect]
     Active Substance: RANITIDINE HYDROCHLORIDE
     Indication: Gastrooesophageal reflux disease

REACTIONS (19)
  - Gastric varices haemorrhage [Unknown]
  - Non-alcoholic steatohepatitis [Unknown]
  - Autoimmune hepatitis [Unknown]
  - Hepatic cirrhosis [Unknown]
  - Portal hypertension [Unknown]
  - Hepatic encephalopathy [Unknown]
  - Thrombosis [Unknown]
  - Pathogen resistance [Unknown]
  - Renal cancer stage I [Recovering/Resolving]
  - Type 2 diabetes mellitus [Unknown]
  - Rheumatoid arthritis [Unknown]
  - Polyneuropathy [Unknown]
  - Liver transplant [Unknown]
  - Adverse drug reaction [Unknown]
  - Myalgia [Unknown]
  - Abdominal pain upper [Unknown]
  - Abdominal pain [Unknown]
  - Complex regional pain syndrome [Unknown]
  - Diverticulum [Unknown]

NARRATIVE: CASE EVENT DATE: 20170101
